FAERS Safety Report 19096712 (Version 1)
Quarter: 2021Q2

REPORT INFORMATION
  Report Type: Spontaneous
  Country: US (occurrence: US)
  Receive Date: 20210405
  Receipt Date: 20210405
  Transmission Date: 20210717
  Serious: No
  Sender: FDA-Public Use
  Company Number: None

PATIENT
  Age: 9 Year
  Sex: Female
  Weight: 27 kg

DRUGS (2)
  1. GUANFASINE EXTENDED RELEASE 2MG [Suspect]
     Active Substance: GUANFACINE
     Indication: ANXIETY
     Dosage: ?          QUANTITY:1 TABLET(S);?
     Route: 048
  2. QUETIAPINE FUMARATE. [Suspect]
     Active Substance: QUETIAPINE FUMARATE

REACTIONS (2)
  - Somnolence [None]
  - Recalled product [None]

NARRATIVE: CASE EVENT DATE: 20210330
